FAERS Safety Report 23653615 (Version 1)
Quarter: 2024Q1

REPORT INFORMATION
  Report Type: Spontaneous
  Country: US (occurrence: None)
  Receive Date: 20240319
  Receipt Date: 20240319
  Transmission Date: 20240410
  Serious: Yes (Other)
  Sender: FDA-Public Use
  Company Number: None

PATIENT
  Age: 74 Year
  Sex: Female

DRUGS (14)
  1. MAVYRET [Suspect]
     Active Substance: GLECAPREVIR\PIBRENTASVIR
     Indication: Chronic hepatitis C
     Dosage: FREQUENCY : DAILY;?
     Route: 048
     Dates: start: 20240215
  2. AMIODARONE [Concomitant]
     Active Substance: AMIODARONE
  3. AMLODIPINE BESYLATE [Concomitant]
     Active Substance: AMLODIPINE BESYLATE
  4. ASPIRIN EC LOW [Concomitant]
  5. CAREDILOL [Concomitant]
  6. DICLOFENACT [Concomitant]
  7. DOXAZOSIN [Concomitant]
  8. GLIMEPIRIDE [Concomitant]
     Active Substance: GLIMEPIRIDE
  9. MAGNESIUM [Concomitant]
     Active Substance: MAGNESIUM
  10. OMEPRAZOLE [Concomitant]
     Active Substance: OMEPRAZOLE
  11. PRAVASTATIN [Concomitant]
  12. TELMISARTAN [Concomitant]
  13. TIZANIDINE [Concomitant]
     Active Substance: TIZANIDINE
  14. XARELTO [Concomitant]
     Active Substance: RIVAROXABAN

REACTIONS (1)
  - Pruritus [None]

NARRATIVE: CASE EVENT DATE: 20240315
